FAERS Safety Report 8427216-1 (Version None)
Quarter: 2012Q2

REPORT INFORMATION
  Report Type: 
  Country: None (occurrence: None)
  Receive Date: 20120611
  Receipt Date: 20120531
  Transmission Date: 20120825
  Serious: Yes (Hospitalization)
  Sender: FDA-Public Use
  Company Number: US-GLAXOSMITHKLINE-A0875232A

PATIENT
  Age: 56 Year
  Sex: Female

DRUGS (2)
  1. AVANDIA [Suspect]
     Indication: TYPE 2 DIABETES MELLITUS
     Dosage: 8MG PER DAY
     Route: 048
     Dates: start: 20030801, end: 20060522
  2. GLUCOVANCE [Concomitant]

REACTIONS (6)
  - CARDIOMEGALY [None]
  - PULMONARY OEDEMA [None]
  - ATELECTASIS [None]
  - ISCHAEMIC CARDIOMYOPATHY [None]
  - CORONARY ARTERY DISEASE [None]
  - RESPIRATORY FAILURE [None]
